FAERS Safety Report 18439831 (Version 1)
Quarter: 2020Q4

REPORT INFORMATION
  Report Type: Other
  Country: CA (occurrence: CA)
  Receive Date: 20201029
  Receipt Date: 20201029
  Transmission Date: 20210114
  Serious: Yes (Other)
  Sender: FDA-Public Use
  Company Number: CA-CELLTRION INC.-2020CA029193

PATIENT

DRUGS (16)
  1. ADALIMUMAB [Suspect]
     Active Substance: ADALIMUMAB
     Indication: PRODUCT USED FOR UNKNOWN INDICATION
     Dosage: 40 MG, 2 EVERY 1 DAY
     Route: 065
  2. GABAPENTIN. [Concomitant]
     Active Substance: GABAPENTIN
     Indication: PAIN
     Dosage: 400 MG, 3 EVERY 1 DAY
     Route: 048
  3. TYLENOL ARTHRITIS PAIN [Concomitant]
     Active Substance: ACETAMINOPHEN
     Indication: PAIN
     Dosage: 650 MG, 4 EVERY 1 DAY
  4. RITUXIMAB (UNKNOWN) [Suspect]
     Active Substance: RITUXIMAB
     Dosage: UNK
     Route: 065
  5. HUMIRA [Suspect]
     Active Substance: ADALIMUMAB
     Indication: PRODUCT USED FOR UNKNOWN INDICATION
     Dosage: 40 MG
     Route: 058
  6. SULFASALAZINE. [Suspect]
     Active Substance: SULFASALAZINE
     Indication: RHEUMATOID ARTHRITIS
     Route: 065
  7. TOCILIZUMAB. [Suspect]
     Active Substance: TOCILIZUMAB
     Indication: PRODUCT USED FOR UNKNOWN INDICATION
     Route: 065
  8. HYDROXYCHLOROQUINE SULFATE. [Suspect]
     Active Substance: HYDROXYCHLOROQUINE SULFATE
     Indication: PRODUCT USED FOR UNKNOWN INDICATION
     Route: 065
  9. TOFACITINIB CITRATE [Suspect]
     Active Substance: TOFACITINIB CITRATE
     Indication: PRODUCT USED FOR UNKNOWN INDICATION
     Route: 065
  10. CICLOSPORIN [Suspect]
     Active Substance: CYCLOSPORINE
     Indication: PRODUCT USED FOR UNKNOWN INDICATION
     Route: 065
  11. METHOTREXATE. [Suspect]
     Active Substance: METHOTREXATE
     Indication: RHEUMATOID ARTHRITIS
     Route: 065
  12. ENBREL [Suspect]
     Active Substance: ETANERCEPT
     Indication: RHEUMATOID ARTHRITIS
     Route: 065
  13. RITUXIMAB (UNKNOWN) [Suspect]
     Active Substance: RITUXIMAB
     Indication: PRODUCT USED FOR UNKNOWN INDICATION
     Dosage: UNK
     Route: 065
  14. XELJANZ [Concomitant]
     Active Substance: TOFACITINIB CITRATE
     Indication: RHEUMATOID ARTHRITIS
     Dosage: 5 MG, EVERY 1 DAY
     Route: 048
  15. ACTEMRA [Suspect]
     Active Substance: TOCILIZUMAB
     Indication: PRODUCT USED FOR UNKNOWN INDICATION
     Route: 065
  16. ORENCIA [Suspect]
     Active Substance: ABATACEPT
     Indication: PRODUCT USED FOR UNKNOWN INDICATION
     Dosage: 125 MG, 1 EVERY 1 WEEK
     Route: 065

REACTIONS (11)
  - Pain in jaw [Unknown]
  - Mobility decreased [Unknown]
  - Drug intolerance [Unknown]
  - Rheumatoid arthritis [Unknown]
  - Neck pain [Unknown]
  - Drug ineffective [Unknown]
  - Anaphylactic reaction [Unknown]
  - Drug hypersensitivity [Unknown]
  - Pain in extremity [Unknown]
  - Blood creatinine increased [Unknown]
  - Musculoskeletal pain [Unknown]
